FAERS Safety Report 20504843 (Version 1)
Quarter: 2022Q1

REPORT INFORMATION
  Report Type: Report from Study
  Country: US (occurrence: US)
  Receive Date: 20220223
  Receipt Date: 20220223
  Transmission Date: 20220423
  Serious: No
  Sender: FDA-Public Use
  Company Number: US-Ipsen Biopharmaceuticals, Inc.-2022-04330

PATIENT
  Age: 33 Year
  Sex: Female

DRUGS (1)
  1. SOMATULINE DEPOT [Suspect]
     Active Substance: LANREOTIDE ACETATE
     Indication: Acromegaly
     Dosage: 90MG, EVERY FOUR WEEKS, SUBCUTANEOUS
     Route: 058
     Dates: start: 20220120

REACTIONS (8)
  - Vomiting [Recovered/Resolved]
  - Headache [Unknown]
  - Diarrhoea [Unknown]
  - Energy increased [Unknown]
  - Illness [Unknown]
  - Abdominal pain [Unknown]
  - Decreased appetite [Unknown]
  - Depressed mood [Unknown]

NARRATIVE: CASE EVENT DATE: 20220101
